FAERS Safety Report 5526123-1 (Version None)
Quarter: 2007Q4

REPORT INFORMATION
  Report Type: 
  Country: None (occurrence: None)
  Receive Date: 20071120
  Receipt Date: 20071108
  Transmission Date: 20080405
  Serious: Yes (Hospitalization)
  Sender: FDA-Public Use
  Company Number: GXKR2007JP05350

PATIENT
  Age: 69 Year
  Sex: Female

DRUGS (2)
  1. RIFAMPICIN [Suspect]
     Indication: LYMPH NODE TUBERCULOSIS
     Dates: start: 20060919
  2. ISONIAZID [Suspect]
     Indication: LYMPH NODE TUBERCULOSIS
     Dates: start: 20060919

REACTIONS (3)
  - FEMORAL ARTERY ANEURYSM [None]
  - HEPATIC FUNCTION ABNORMAL [None]
  - LOCAL SWELLING [None]
